FAERS Safety Report 5095331-9 (Version None)
Quarter: 2006Q3

REPORT INFORMATION
  Report Type: 
  Country: None (occurrence: None)
  Receive Date: 20060901
  Receipt Date: 20060831
  Transmission Date: 20061208
  Serious: Yes (Other)
  Sender: FDA-Public Use
  Company Number: US-GLAXOSMITHKLINE-A0618788A

PATIENT
  Age: 21 Year
  Sex: Female

DRUGS (6)
  1. WELLBUTRIN XL [Suspect]
     Indication: SMOKING CESSATION THERAPY
     Dosage: 150MG PER DAY
     Route: 048
  2. EFFEXOR [Concomitant]
  3. XANAX [Concomitant]
  4. ALBUTEROL [Concomitant]
  5. FLOVENT [Concomitant]
  6. ALLEGRA [Concomitant]

REACTIONS (8)
  - ABNORMAL BEHAVIOUR [None]
  - AGGRESSION [None]
  - AMNESIA [None]
  - ANGER [None]
  - ANXIETY [None]
  - DEPRESSION [None]
  - PANIC REACTION [None]
  - SUICIDE ATTEMPT [None]
